FAERS Safety Report 9290835 (Version 1)
Quarter: 2013Q2

REPORT INFORMATION
  Report Type: Spontaneous
  Country: US (occurrence: None)
  Receive Date: 20130514
  Receipt Date: 20130514
  Transmission Date: 20140414
  Serious: No
  Sender: FDA-Public Use
  Company Number: None

PATIENT
  Age: 16 Year
  Sex: Female

DRUGS (1)
  1. BUPROPION [Suspect]
     Dosage: 100 MG TWICE DAILY PO
     Route: 048
     Dates: start: 20130502, end: 20130510

REACTIONS (2)
  - Nausea [None]
  - Vomiting [None]
